FAERS Safety Report 11670614 (Version 1)
Quarter: 2015Q4

REPORT INFORMATION
  Report Type: Spontaneous
  Country: US (occurrence: US)
  Receive Date: 20151027
  Receipt Date: 20151027
  Transmission Date: 20160304
  Serious: No
  Sender: FDA-Public Use
  Company Number: US-ELI_LILLY_AND_COMPANY-US201005002711

PATIENT
  Age: 64 Year
  Sex: Female

DRUGS (5)
  1. FORTEO [Suspect]
     Active Substance: TERIPARATIDE
     Dosage: 20 UG, DAILY (1/D)
  2. FORTEO [Suspect]
     Active Substance: TERIPARATIDE
     Dosage: 20 UG, OTHER
  3. FORTEO [Suspect]
     Active Substance: TERIPARATIDE
     Dosage: 20 UG, DAILY (1/D)
  4. ANALGESICS [Concomitant]
     Active Substance: UNSPECIFIED INGREDIENT
     Indication: PAIN
  5. FORTEO [Suspect]
     Active Substance: TERIPARATIDE
     Indication: OSTEOPOROSIS
     Dosage: 20 UG, DAILY (1/D)
     Dates: end: 2008

REACTIONS (15)
  - Muscular weakness [Unknown]
  - Constipation [Unknown]
  - Neuralgia [Recovering/Resolving]
  - Vomiting [Recovering/Resolving]
  - Gastrooesophageal reflux disease [Unknown]
  - Asthenia [Unknown]
  - Humerus fracture [Unknown]
  - Weight decreased [Recovering/Resolving]
  - Fatigue [Unknown]
  - Pain [Unknown]
  - Malaise [Unknown]
  - Blood calcium increased [Unknown]
  - Nausea [Unknown]
  - Bone density decreased [Unknown]
  - Fall [Recovered/Resolved]

NARRATIVE: CASE EVENT DATE: 20100514
